FAERS Safety Report 26044257 (Version 1)
Quarter: 2025Q4

REPORT INFORMATION
  Report Type: Spontaneous
  Country: CA (occurrence: CA)
  Receive Date: 20251114
  Receipt Date: 20251114
  Transmission Date: 20260117
  Serious: Yes (Death, Other)
  Sender: CELLTRION
  Company Number: CA-CELLTRION INC.-2024CA019522

PATIENT

DRUGS (3)
  1. TRUXIMA [Suspect]
     Active Substance: RITUXIMAB-ABBS
     Indication: Encephalitis
     Dosage: 1000 MG, Q 6 MONTHS
     Route: 042
     Dates: start: 20241106, end: 20251105
  2. TRUXIMA [Suspect]
     Active Substance: RITUXIMAB-ABBS
     Dosage: 2ND DOSE
     Route: 042
  3. ZOPICLONE [Concomitant]
     Active Substance: ZOPICLONE

REACTIONS (5)
  - Death [Fatal]
  - Anxiety [Unknown]
  - Hypertension [Unknown]
  - Tachycardia [Unknown]
  - Off label use [Unknown]
